FAERS Safety Report 4601380-4 (Version None)
Quarter: 2005Q1

REPORT INFORMATION
  Report Type: 
  Country: None (occurrence: None)
  Receive Date: 20050308
  Receipt Date: 20050225
  Transmission Date: 20050727
  Serious: Yes (Disabling)
  Sender: FDA-Public Use
  Company Number: DE-AMGEN-UK116506

PATIENT
  Sex: Male
  Weight: 66.8 kg

DRUGS (3)
  1. MIMPARA [Suspect]
     Route: 048
     Dates: start: 20050202, end: 20050222
  2. BELOC ZOK [Concomitant]
     Route: 048
     Dates: start: 20000101
  3. RAMIPRIL [Concomitant]
     Route: 048
     Dates: start: 20000101

REACTIONS (2)
  - DRUG EFFECT DECREASED [None]
  - HYPERTENSIVE CRISIS [None]
